FAERS Safety Report 23918323 (Version 1)
Quarter: 2024Q2

REPORT INFORMATION
  Report Type: Spontaneous
  Country: US (occurrence: US)
  Receive Date: 20240530
  Receipt Date: 20240530
  Transmission Date: 20240715
  Serious: Yes (Other)
  Sender: FDA-Public Use
  Company Number: US-AVET LIFESCIENCES LTD-2024-AVET-000182

PATIENT
  Age: 31 Year
  Sex: Male

DRUGS (7)
  1. AMIKACIN SULFATE [Suspect]
     Active Substance: AMIKACIN SULFATE
     Indication: Mycobacterium kansasii infection
     Dosage: WEIGHT?BASED
     Route: 042
  2. RIFAMPIN [Concomitant]
     Active Substance: RIFAMPIN
     Indication: Mycobacterium kansasii infection
     Dosage: 600 MILLIGRAM DAILY
     Route: 048
  3. AZITHROMYCIN [Concomitant]
     Active Substance: AZITHROMYCIN
     Indication: Mycobacterium kansasii infection
     Dosage: 500 MILLIGRAM DAILY
  4. ETHAMBUTOL [Concomitant]
     Active Substance: ETHAMBUTOL HYDROCHLORIDE
     Indication: Mycobacterium kansasii infection
     Dosage: 1200 MILLIGRAM DAILY
  5. CLADRIBINE [Concomitant]
     Active Substance: CLADRIBINE
     Indication: Chemotherapy
     Dosage: UNK
  6. RITUXIMAB [Concomitant]
     Active Substance: RITUXIMAB
     Indication: Chemotherapy
     Dosage: UNK
  7. GRANULOCYTE COLONY-STIMULATING FACTOR NOS [Concomitant]
     Active Substance: GRANULOCYTE COLONY-STIMULATING FACTOR NOS
     Dosage: UNK

REACTIONS (2)
  - Tinnitus [Recovered/Resolved with Sequelae]
  - Deafness [Recovered/Resolved with Sequelae]
